FAERS Safety Report 10052743 (Version 3)
Quarter: 2014Q2

REPORT INFORMATION
  Report Type: Spontaneous
  Country: US (occurrence: US)
  Receive Date: 20140402
  Receipt Date: 20140516
  Transmission Date: 20141212
  Serious: Yes (Hospitalization, Disabling, Other)
  Sender: FDA-Public Use
  Company Number: US-009507513-1403USA012729

PATIENT
  Age: 43 Year
  Sex: Female
  Weight: 63.49 kg

DRUGS (5)
  1. NOXAFIL [Suspect]
     Indication: ASPERGILLUS INFECTION
     Dosage: ORAL SUSPENSION
     Route: 048
     Dates: start: 201204, end: 2013
  2. NOXAFIL [Suspect]
     Dosage: 40 MG/ML SOLUTION, 100 MG BID
     Route: 048
     Dates: start: 20131002
  3. NOXAFIL [Suspect]
     Dosage: SUSPENSION
     Route: 048
     Dates: start: 201311
  4. NOXAFIL [Suspect]
     Indication: ASPERGILLUS INFECTION
     Dosage: TABLET
     Dates: start: 20131126, end: 20140226
  5. COLCHICINE [Suspect]

REACTIONS (23)
  - Insomnia [Recovered/Resolved]
  - Rash generalised [Recovered/Resolved]
  - Liver function test abnormal [Recovered/Resolved]
  - Diarrhoea [Recovered/Resolved]
  - Dehydration [Recovered/Resolved]
  - Large intestine polyp [Recovered/Resolved]
  - Bradycardia [Recovered/Resolved]
  - Thrombocytopenia [Recovered/Resolved]
  - Abdominal pain [Recovering/Resolving]
  - Abdominal mass [Recovered/Resolved]
  - Large intestinal polypectomy [Unknown]
  - Behcet^s syndrome [Not Recovered/Not Resolved]
  - Pleural effusion [Recovered/Resolved]
  - Abdominal wall haemorrhage [Unknown]
  - Stomatitis [Recovered/Resolved]
  - Clostridium difficile colitis [Recovered/Resolved]
  - Dry eye [Unknown]
  - Haemorrhagic ovarian cyst [Unknown]
  - Stomatitis [Unknown]
  - Constipation [Unknown]
  - Abdominal pain upper [Unknown]
  - Oesophagitis [Recovered/Resolved]
  - Hypokalaemia [Recovered/Resolved]
